FAERS Safety Report 4339828-5 (Version None)
Quarter: 2004Q2

REPORT INFORMATION
  Report Type: 
  Country: None (occurrence: None)
  Receive Date: 20040415
  Receipt Date: 20040415
  Transmission Date: 20050107
  Serious: Yes (Hospitalization)
  Sender: FDA-Public Use
  Company Number: None

PATIENT
  Sex: Male
  Weight: 79.4 kg

DRUGS (1)
  1. ONTAK [Suspect]
     Indication: NON-SMALL CELL LUNG CANCER
     Dosage: 18 MCG /KG X 5 D IV
     Route: 042
     Dates: start: 20040412, end: 20040419

REACTIONS (3)
  - ARTHRALGIA [None]
  - DYSPHAGIA [None]
  - NECK PAIN [None]
